FAERS Safety Report 8652383 (Version 2)
Quarter: 2012Q4

REPORT INFORMATION
  Report Type: 
  Country: US (occurrence: US)
  Receive Date: 20120706
  Receipt Date: 20120903
  Transmission Date: 20130627
  Serious: Yes (Other)
  Sender: FDA-Public Use
  Company Number: US-BAYER-2012-064929

PATIENT
  Age: 25 Year
  Sex: Female
  Weight: 88.44 kg

DRUGS (2)
  1. BEYAZ [Suspect]
     Indication: ACNE
     Dosage: UNK
     Route: 048
     Dates: start: 20120404, end: 201206
  2. BEYAZ [Suspect]
     Indication: CONTRACEPTION

REACTIONS (3)
  - Pulmonary embolism [None]
  - Abdominal pain upper [None]
  - Flank pain [None]
